FAERS Safety Report 11935147 (Version 1)
Quarter: 2016Q1

REPORT INFORMATION
  Report Type: Spontaneous
  Country: HU (occurrence: HU)
  Receive Date: 20160121
  Receipt Date: 20160121
  Transmission Date: 20160526
  Serious: Yes (Hospitalization)
  Sender: FDA-Public Use
  Company Number: HU-PFIZER INC-2016022484

PATIENT
  Age: 75 Year
  Sex: Male

DRUGS (1)
  1. XALKORI [Suspect]
     Active Substance: CRIZOTINIB
     Indication: LUNG ADENOCARCINOMA
     Dosage: 250 MG, 2X/DAY
     Route: 048
     Dates: start: 201509

REACTIONS (6)
  - Disease progression [Unknown]
  - General physical health deterioration [Unknown]
  - Chest pain [Unknown]
  - Pleural effusion [Unknown]
  - Lung adenocarcinoma [Unknown]
  - Asthenia [Unknown]
